FAERS Safety Report 9183367 (Version 1)
Quarter: 2012Q4

REPORT INFORMATION
  Report Type: Report from Study
  Country: GB (occurrence: GB)
  Receive Date: 20121101
  Receipt Date: 20121101
  Transmission Date: 20130627
  Serious: Yes (Hospitalization)
  Sender: FDA-Public Use
  Company Number: GB-ROCHE-1151244

PATIENT
  Age: 62 None
  Sex: Female
  Weight: 87 kg

DRUGS (2)
  1. RITUXIMAB [Suspect]
     Indication: RHEUMATOID ARTHRITIS
     Dosage: On 12/Dec/2011, last dose prior to SAE.
     Route: 065
     Dates: start: 20071015
  2. METHOTREXATE [Concomitant]

REACTIONS (2)
  - Neutropenic sepsis [Unknown]
  - Deep vein thrombosis [Unknown]
